FAERS Safety Report 10792372 (Version 1)
Quarter: 2015Q1

REPORT INFORMATION
  Report Type: Spontaneous
  Country: NL (occurrence: NL)
  Receive Date: 20150213
  Receipt Date: 20150213
  Transmission Date: 20150721
  Serious: Yes (Other)
  Sender: FDA-Public Use
  Company Number: NL-TEVA-539905ISR

PATIENT
  Age: 8 Year
  Sex: Male
  Weight: 26 kg

DRUGS (1)
  1. LEVETIRACTAM [Suspect]
     Active Substance: LEVETIRACETAM
     Indication: EPILEPSY
     Dosage: 3 DOSAGE FORMS DAILY; TWICE DAILY 1.5 PIECES, ADDITIONAL INFORMATION: 1.25
     Route: 048
     Dates: start: 2014, end: 20150129

REACTIONS (3)
  - Hallucination [Recovering/Resolving]
  - Therapeutic response unexpected [Recovering/Resolving]
  - Aggression [Recovering/Resolving]

NARRATIVE: CASE EVENT DATE: 20150125
